FAERS Safety Report 24713701 (Version 2)
Quarter: 2025Q1

REPORT INFORMATION
  Report Type: Spontaneous
  Country: FR (occurrence: FR)
  Receive Date: 20241209
  Receipt Date: 20250129
  Transmission Date: 20250409
  Serious: Yes (Other)
  Sender: MERCK
  Company Number: None

PATIENT
  Age: 32 Year
  Sex: Female
  Weight: 59 kg

DRUGS (7)
  1. PEMBROLIZUMAB [Suspect]
     Active Substance: PEMBROLIZUMAB
     Indication: Lung adenocarcinoma
     Dosage: 1 DOSAGE FORM, Q3W
     Route: 042
     Dates: start: 202404
  2. PREGABALIN [Suspect]
     Active Substance: PREGABALIN
     Indication: Neuralgia
     Dosage: 300 MILLIGRAM, QD
     Route: 048
     Dates: start: 202407
  3. LAMICTAL [Concomitant]
     Active Substance: LAMOTRIGINE
  4. OXYCODONE [Concomitant]
     Active Substance: OXYCODONE
  5. FOLIC ACID [Concomitant]
     Active Substance: FOLIC ACID
  6. CARBOPLATIN [Concomitant]
     Active Substance: CARBOPLATIN
  7. PEMETREXED [Concomitant]
     Active Substance: PEMETREXED

REACTIONS (3)
  - Blood thyroid stimulating hormone increased [Not Recovered/Not Resolved]
  - Epilepsy [Recovering/Resolving]
  - Condition aggravated [Recovering/Resolving]

NARRATIVE: CASE EVENT DATE: 20240924
